FAERS Safety Report 24010239 (Version 2)
Quarter: 2024Q3

REPORT INFORMATION
  Report Type: Spontaneous
  Country: JP (occurrence: JP)
  Receive Date: 20240625
  Receipt Date: 20240812
  Transmission Date: 20241017
  Serious: Yes (Other)
  Sender: OTSUKA
  Company Number: JP-OTSUKA-2024_017487AA

PATIENT
  Age: 6 Decade
  Sex: Female

DRUGS (1)
  1. ARIPIPRAZOLE [Suspect]
     Active Substance: ARIPIPRAZOLE
     Indication: Schizophrenia
     Dosage: 12 MG
     Route: 065

REACTIONS (3)
  - Hallucination, auditory [Recovered/Resolved]
  - Insomnia [Unknown]
  - Therapy interrupted [Unknown]
